FAERS Safety Report 17128989 (Version 1)
Quarter: 2019Q4

REPORT INFORMATION
  Report Type: Spontaneous
  Country: US (occurrence: US)
  Receive Date: 20191208
  Receipt Date: 20191208
  Transmission Date: 20200122
  Serious: Yes (Other)
  Sender: FDA-Public Use
  Company Number: None

PATIENT
  Age: 32 Year
  Sex: Female
  Weight: 72 kg

DRUGS (2)
  1. OXCARBAZEPINE. [Suspect]
     Active Substance: OXCARBAZEPINE
     Indication: ANXIETY
     Route: 048
     Dates: start: 20191125, end: 20191208
  2. OXCARBAZEPINE. [Suspect]
     Active Substance: OXCARBAZEPINE
     Indication: DEPRESSION
     Route: 048
     Dates: start: 20191125, end: 20191208

REACTIONS (4)
  - Decreased appetite [None]
  - Somnolence [None]
  - Apathy [None]
  - Anhedonia [None]

NARRATIVE: CASE EVENT DATE: 20191127
